FAERS Safety Report 22207881 (Version 5)
Quarter: 2025Q3

REPORT INFORMATION
  Report Type: Spontaneous
  Country: US (occurrence: US)
  Receive Date: 20230413
  Receipt Date: 20250805
  Transmission Date: 20251020
  Serious: No
  Sender: TAKEDA
  Company Number: US-TAKEDA-2023TUS034710

PATIENT
  Sex: Female
  Weight: 54 kg

DRUGS (4)
  1. MOTEGRITY [Suspect]
     Active Substance: PRUCALOPRIDE SUCCINATE
     Indication: Constipation
     Dosage: 2 MILLIGRAM, QD
     Dates: start: 2020
  2. MOTEGRITY [Suspect]
     Active Substance: PRUCALOPRIDE SUCCINATE
     Dosage: 4 MILLIGRAM, QD
     Dates: start: 2020, end: 202212
  3. SENNOSIDES [Concomitant]
     Active Substance: SENNOSIDES
     Indication: Laxative supportive care
  4. SUMATRIPTAN [Concomitant]
     Active Substance: SUMATRIPTAN
     Indication: Product used for unknown indication

REACTIONS (4)
  - Constipation [Unknown]
  - Drug ineffective [Unknown]
  - Insurance issue [Unknown]
  - Inability to afford medication [Unknown]
